FAERS Safety Report 25311953 (Version 1)
Quarter: 2025Q2

REPORT INFORMATION
  Report Type: Spontaneous
  Country: US (occurrence: US)
  Receive Date: 20250514
  Receipt Date: 20250514
  Transmission Date: 20250717
  Serious: No
  Sender: INSUD PHARMA
  Company Number: US-INSUD PHARMA-2505US03469

PATIENT

DRUGS (2)
  1. SLYND [Suspect]
     Active Substance: DROSPIRENONE
     Indication: Oral contraception
     Route: 048
     Dates: start: 2023
  2. SLYND [Suspect]
     Active Substance: DROSPIRENONE
     Indication: Acne

REACTIONS (4)
  - Alopecia [Not Recovered/Not Resolved]
  - Poor quality product administered [Unknown]
  - Product physical issue [Unknown]
  - Product use in unapproved indication [Unknown]

NARRATIVE: CASE EVENT DATE: 20230101
